FAERS Safety Report 4804152-0 (Version None)
Quarter: 2005Q4

REPORT INFORMATION
  Report Type: 
  Country: None (occurrence: None)
  Receive Date: 20051014
  Receipt Date: 20051004
  Transmission Date: 20060501
  Serious: Yes (Other)
  Sender: FDA-Public Use
  Company Number: 2005138131

PATIENT
  Age: 33 Year
  Sex: Female
  Weight: 70.3075 kg

DRUGS (2)
  1. DEPO-PROVERA [Suspect]
     Indication: CONTRACEPTION
     Dosage: UNKNOWN (SINGLE INJECTION), INTRAMUSCULAR
     Route: 030
     Dates: start: 20050101, end: 20050101
  2. ZOLOFT [Concomitant]

REACTIONS (10)
  - BACK PAIN [None]
  - DEPRESSION [None]
  - HEADACHE [None]
  - HOT FLUSH [None]
  - INJECTION SITE PAIN [None]
  - IRRITABILITY [None]
  - MIGRAINE [None]
  - MOOD SWINGS [None]
  - NECK PAIN [None]
  - SUICIDAL IDEATION [None]
